FAERS Safety Report 10430645 (Version 3)
Quarter: 2014Q4

REPORT INFORMATION
  Report Type: Spontaneous
  Country: US (occurrence: US)
  Receive Date: 20140904
  Receipt Date: 20141120
  Transmission Date: 20150528
  Serious: No
  Sender: FDA-Public Use
  Company Number: US-PFIZER INC-2014243778

PATIENT
  Age: 50 Year
  Sex: Female
  Weight: 67.12 kg

DRUGS (4)
  1. EQL REMEPRIN [Suspect]
     Active Substance: BLACK COHOSH
     Dosage: 20 MG, 2X/DAY
     Route: 048
  2. CHLORTHALIDONE. [Suspect]
     Active Substance: CHLORTHALIDONE
     Dosage: 25 MG, 1X/DAY
     Dates: start: 20140805
  3. NAPROSYN [Suspect]
     Active Substance: NAPROXEN
     Dosage: 500 MG, 2X/DAY
     Route: 048
  4. LYRICA [Suspect]
     Active Substance: PREGABALIN
     Indication: FIBROMYALGIA
     Dosage: 75 MG, 2X/DAY
     Dates: start: 20140418

REACTIONS (2)
  - Blood pressure increased [Unknown]
  - Body mass index increased [Unknown]

NARRATIVE: CASE EVENT DATE: 20140805
